FAERS Safety Report 24380958 (Version 1)
Quarter: 2024Q3

REPORT INFORMATION
  Report Type: Spontaneous
  Country: MX (occurrence: MX)
  Receive Date: 20240930
  Receipt Date: 20240930
  Transmission Date: 20241016
  Serious: Yes (Death, Other)
  Sender: JOHNSON AND JOHNSON
  Company Number: MX-BAYER-2024A138443

PATIENT
  Age: 76 Year
  Sex: Female

DRUGS (2)
  1. RIVAROXABAN [Suspect]
     Active Substance: RIVAROXABAN
     Indication: Ischaemia
     Dosage: 20 MG, QD?XARELTO 20 MG
     Route: 048
     Dates: start: 20211208
  2. RIVAROXABAN [Suspect]
     Active Substance: RIVAROXABAN
     Dosage: 10 MG, QD?XARELTO 10 MG
     Route: 048
     Dates: end: 202307

REACTIONS (5)
  - Lung neoplasm malignant [Fatal]
  - Illness [Unknown]
  - Fall [Unknown]
  - Femur fracture [Unknown]
  - Off label use [Unknown]

NARRATIVE: CASE EVENT DATE: 20230701
